FAERS Safety Report 8074899-4 (Version None)
Quarter: 2012Q1

REPORT INFORMATION
  Report Type: 
  Country: None (occurrence: None)
  Receive Date: 20120126
  Receipt Date: 20120117
  Transmission Date: 20120608
  Serious: Yes (Death, Hospitalization)
  Sender: FDA-Public Use
  Company Number: US-BAXTER-2012BH000702

PATIENT
  Age: 75 Year
  Sex: Female

DRUGS (2)
  1. DIANEAL PD-2 W/ DEXTROSE 1.5% [Suspect]
     Indication: PERITONEAL DIALYSIS
     Route: 033
     Dates: end: 20120101
  2. DIANEAL [Suspect]
     Indication: PERITONEAL DIALYSIS
     Route: 033
     Dates: end: 20120101

REACTIONS (2)
  - ARRHYTHMIA [None]
  - HERNIA [None]
